FAERS Safety Report 9155585 (Version 2)
Quarter: 2013Q1

REPORT INFORMATION
  Report Type: Report from Study
  Country: US (occurrence: US)
  Receive Date: 20130311
  Receipt Date: 20130321
  Transmission Date: 20140127
  Serious: Yes (Life-Threatening, Hospitalization)
  Sender: FDA-Public Use
  Company Number: PHEH2013US005610

PATIENT
  Age: 34 Year
  Sex: Female
  Weight: 53.61 kg

DRUGS (1)
  1. GILENYA [Suspect]
     Indication: MULTIPLE SCLEROSIS
     Dosage: 0.5 MG, QD
     Route: 048
     Dates: start: 201210, end: 20130301

REACTIONS (12)
  - Acute respiratory failure [Recovered/Resolved with Sequelae]
  - Respiratory distress [Recovered/Resolved]
  - Pulmonary alveolar haemorrhage [Recovering/Resolving]
  - Pulmonary oedema [Recovered/Resolved]
  - Dyspnoea [Recovered/Resolved]
  - Vomiting [Recovered/Resolved]
  - Productive cough [Recovering/Resolving]
  - Cardiac failure [Unknown]
  - Cardiotoxicity [Recovering/Resolving]
  - Ejection fraction decreased [Unknown]
  - Headache [Recovered/Resolved]
  - Dizziness [Recovering/Resolving]
